FAERS Safety Report 25207094 (Version 1)
Quarter: 2025Q2

REPORT INFORMATION
  Report Type: Spontaneous
  Country: GB (occurrence: GB)
  Receive Date: 20250417
  Receipt Date: 20250417
  Transmission Date: 20250717
  Serious: Yes (Hospitalization)
  Sender: MYLAN
  Company Number: GB-MYLANLABS-2025M1000874

PATIENT
  Sex: Female

DRUGS (8)
  1. CLOZARIL [Suspect]
     Active Substance: CLOZAPINE
     Indication: Schizophrenia
     Dosage: UNK UNK, PM
     Route: 048
     Dates: start: 20150804
  2. CLOZARIL [Suspect]
     Active Substance: CLOZAPINE
     Dosage: UNK UNK, PM
     Dates: start: 20150804
  3. CLOZARIL [Suspect]
     Active Substance: CLOZAPINE
     Dosage: UNK UNK, PM
     Dates: start: 20150804
  4. CLOZARIL [Suspect]
     Active Substance: CLOZAPINE
     Dosage: UNK UNK, PM
     Route: 048
     Dates: start: 20150804
  5. CLOZARIL [Suspect]
     Active Substance: CLOZAPINE
     Route: 048
     Dates: start: 20250324, end: 20250406
  6. CLOZARIL [Suspect]
     Active Substance: CLOZAPINE
     Dates: start: 20250324, end: 20250406
  7. CLOZARIL [Suspect]
     Active Substance: CLOZAPINE
     Dates: start: 20250324, end: 20250406
  8. CLOZARIL [Suspect]
     Active Substance: CLOZAPINE
     Route: 048
     Dates: start: 20250324, end: 20250406

REACTIONS (4)
  - Sepsis [Unknown]
  - Norovirus infection [Unknown]
  - Illness [Unknown]
  - Product dose omission issue [Unknown]
